FAERS Safety Report 9993685 (Version 2)
Quarter: 2014Q1

REPORT INFORMATION
  Report Type: Spontaneous
  Country: US (occurrence: US)
  Receive Date: 20140310
  Receipt Date: 20140324
  Transmission Date: 20141002
  Serious: Yes (Hospitalization, Other)
  Sender: FDA-Public Use
  Company Number: US-ASTRAZENECA-2014SE14502

PATIENT
  Age: 109 Day
  Sex: Male

DRUGS (6)
  1. SYNAGIS [Suspect]
     Indication: PREMATURE BABY
     Dosage: 50 MG/0.5 ML
     Route: 030
  2. SYNAGIS [Suspect]
     Indication: PREMATURE BABY
     Route: 030
     Dates: start: 20131228
  3. SYNAGIS [Suspect]
     Indication: PREMATURE BABY
     Route: 030
     Dates: start: 20140224
  4. RANITIDINE [Concomitant]
  5. VITAMIN D [Concomitant]
  6. IRON [Concomitant]

REACTIONS (2)
  - Croup infectious [Unknown]
  - Bronchiolitis [Unknown]
